FAERS Safety Report 18217075 (Version 1)
Quarter: 2020Q3

REPORT INFORMATION
  Report Type: Spontaneous
  Country: US (occurrence: US)
  Receive Date: 20200831
  Receipt Date: 20200831
  Transmission Date: 20201103
  Serious: No
  Sender: FDA-Public Use
  Company Number: None

PATIENT
  Age: 49 Year
  Sex: Male

DRUGS (1)
  1. HYDROCHLOROTHIAZIDE/LISINOPRIL(HYDROCHLOROTHIAZIDE 25MG/LISINOPRIL 20MG TAB) [Suspect]
     Active Substance: HYDROCHLOROTHIAZIDE\LISINOPRIL
     Indication: HYPERTENSION
     Route: 048
     Dates: start: 20180927, end: 20200727

REACTIONS (1)
  - Angioedema [None]

NARRATIVE: CASE EVENT DATE: 20200727
